FAERS Safety Report 8875223 (Version 1)
Quarter: 2012Q4

REPORT INFORMATION
  Report Type: 
  Country: US (occurrence: US)
  Receive Date: 20121026
  Receipt Date: 20121026
  Transmission Date: 20130627
  Serious: No
  Sender: FDA-Public Use
  Company Number: US-AMGEN-USASP2012044841

PATIENT
  Age: 73 Year
  Sex: Male
  Weight: 108.84 kg

DRUGS (1)
  1. ENBREL [Suspect]
     Indication: RHEUMATOID ARTHRITIS
     Dosage: 50 mg/ml, qwk
     Route: 058
     Dates: start: 20120627

REACTIONS (2)
  - Myalgia [Unknown]
  - Diarrhoea [Unknown]
